FAERS Safety Report 23761554 (Version 1)
Quarter: 2024Q2

REPORT INFORMATION
  Report Type: Spontaneous
  Country: GB (occurrence: GB)
  Receive Date: 20240419
  Receipt Date: 20240419
  Transmission Date: 20240716
  Serious: Yes (Hospitalization, Other)
  Sender: FDA-Public Use
  Company Number: None

PATIENT
  Age: 44 Year
  Sex: Female
  Weight: 91 kg

DRUGS (1)
  1. ACAMPROSATE [Suspect]
     Active Substance: ACAMPROSATE
     Indication: Product used for unknown indication
     Dosage: 666 MILLIGRAM, TID, WITH FOOD
     Route: 065
     Dates: start: 20240312, end: 20240322

REACTIONS (4)
  - Headache [Recovered/Resolved]
  - Dehydration [Unknown]
  - Renal failure [Unknown]
  - Vomiting [Recovered/Resolved]
